FAERS Safety Report 8920691 (Version 2)
Quarter: 2012Q4

REPORT INFORMATION
  Report Type: 
  Country: GB (occurrence: GB)
  Receive Date: 20121122
  Receipt Date: 20121203
  Transmission Date: 20130627
  Serious: Yes (Other)
  Sender: FDA-Public Use
  Company Number: GB-009507513-1211GBR006118

PATIENT

DRUGS (1)
  1. SINGULAIR [Suspect]

REACTIONS (1)
  - Adverse event [Unknown]
